FAERS Safety Report 9669054 (Version 1)
Quarter: 2013Q4

REPORT INFORMATION
  Report Type: Spontaneous
  Country: US (occurrence: US)
  Receive Date: 20131105
  Receipt Date: 20131105
  Transmission Date: 20140711
  Serious: No
  Sender: FDA-Public Use
  Company Number: US-PFIZER INC-2013314123

PATIENT
  Age: 77 Year
  Sex: Female

DRUGS (6)
  1. CELEBREX [Suspect]
     Dosage: UNK
  2. GABAPENTIN [Suspect]
     Dosage: UNK
  3. CIPROFLOXACIN [Suspect]
     Dosage: UNK
  4. NORFLEX [Suspect]
     Dosage: UNK
  5. BENTYL [Suspect]
     Dosage: UNK
  6. PHENERGAN [Suspect]
     Dosage: 25 MG

REACTIONS (1)
  - Drug hypersensitivity [Unknown]
